FAERS Safety Report 7557245-1 (Version None)
Quarter: 2011Q2

REPORT INFORMATION
  Report Type: 
  Country: None (occurrence: None)
  Receive Date: 20110620
  Receipt Date: 20110606
  Transmission Date: 20111010
  Serious: Yes (Other)
  Sender: FDA-Public Use
  Company Number: GB-JNJFOC-20110603061

PATIENT
  Age: 17 Year
  Sex: Female
  Weight: 76.2 kg

DRUGS (3)
  1. INFLIXIMAB, RECOMBINANT [Suspect]
     Indication: JUVENILE ARTHRITIS
     Dosage: STRENGTH: 6MG/KG
     Route: 042
  2. INFLIXIMAB, RECOMBINANT [Suspect]
     Indication: PSORIATIC ARTHROPATHY
     Dosage: STRENGTH: 6MG/KG
     Route: 042
  3. METHOTREXATE [Concomitant]

REACTIONS (6)
  - TACHYCARDIA [None]
  - CHEST DISCOMFORT [None]
  - FLUSHING [None]
  - PARAESTHESIA [None]
  - PARAESTHESIA ORAL [None]
  - INFUSION RELATED REACTION [None]
